FAERS Safety Report 10598268 (Version 2)
Quarter: 2014Q4

REPORT INFORMATION
  Report Type: Spontaneous
  Country: US (occurrence: US)
  Receive Date: 20141121
  Receipt Date: 20141125
  Transmission Date: 20150529
  Serious: Yes (Other)
  Sender: FDA-Public Use
  Company Number: US-PFIZER INC-2014315625

PATIENT
  Age: 57 Year
  Sex: Female
  Weight: 52.61 kg

DRUGS (8)
  1. NEURONTIN [Suspect]
     Active Substance: GABAPENTIN
     Dosage: 1200 MG, UNK
  2. VYVANSE [Suspect]
     Active Substance: LISDEXAMFETAMINE DIMESYLATE
     Dosage: UNK
  3. NEURONTIN [Suspect]
     Active Substance: GABAPENTIN
     Dosage: 600 MG, UNK
  4. NEURONTIN [Suspect]
     Active Substance: GABAPENTIN
     Dosage: 900 MG, UNK
  5. NEURONTIN [Suspect]
     Active Substance: GABAPENTIN
     Dosage: 2400 MG, UNK
  6. NEURONTIN [Suspect]
     Active Substance: GABAPENTIN
     Dosage: 1800 MG, UNK
  7. CYMBALTA [Suspect]
     Active Substance: DULOXETINE HYDROCHLORIDE
     Dosage: UNK
  8. NEURONTIN [Suspect]
     Active Substance: GABAPENTIN
     Indication: NEUROPATHY PERIPHERAL
     Dosage: 300 MG, UNK
     Dates: start: 2003

REACTIONS (27)
  - Cognitive disorder [Recovering/Resolving]
  - Weight decreased [Unknown]
  - Activities of daily living impaired [Unknown]
  - Pain in extremity [Unknown]
  - Abnormal behaviour [Recovering/Resolving]
  - Confusional state [Recovering/Resolving]
  - Hallucination, visual [Recovering/Resolving]
  - Colour blindness acquired [Unknown]
  - Feeling abnormal [Recovering/Resolving]
  - Brain injury [Unknown]
  - Depression [Recovering/Resolving]
  - Memory impairment [Recovering/Resolving]
  - Distractibility [Recovering/Resolving]
  - Nervous system disorder [Recovering/Resolving]
  - Anxiety [Recovering/Resolving]
  - Back pain [Unknown]
  - Personality change [Recovering/Resolving]
  - Grandiosity [Recovering/Resolving]
  - Toxicity to various agents [Unknown]
  - Therapeutic response unexpected [Not Recovered/Not Resolved]
  - Disturbance in attention [Recovering/Resolving]
  - Neuralgia [Unknown]
  - Tachyphrenia [Recovering/Resolving]
  - Mental impairment [Recovering/Resolving]
  - Spinal disorder [Unknown]
  - Drug ineffective [Unknown]
  - Change in sustained attention [Recovering/Resolving]
